FAERS Safety Report 7397432-9 (Version None)
Quarter: 2011Q1

REPORT INFORMATION
  Report Type: 
  Country: None (occurrence: None)
  Receive Date: 20110328
  Receipt Date: 20110322
  Transmission Date: 20110831
  Serious: Yes (Other)
  Sender: FDA-Public Use
  Company Number: US-ACCORD-008566

PATIENT
  Age: 63 Year
  Sex: Male

DRUGS (1)
  1. FINASTERIDE [Suspect]
     Indication: PRODUCT USED FOR UNKNOWN INDICATION
     Dosage: 5.00-MG-1.00 TIMES / ORAL PER-1.0DAYS
     Route: 048
     Dates: start: 20110310

REACTIONS (1)
  - BLADDER PAIN [None]
